FAERS Safety Report 14992585 (Version 1)
Quarter: 2018Q2

REPORT INFORMATION
  Report Type: Spontaneous
  Country: JP (occurrence: JP)
  Receive Date: 20180609
  Receipt Date: 20180609
  Transmission Date: 20180711
  Serious: Yes (Other)
  Sender: FDA-Public Use
  Company Number: JP-AMGEN-JPNSP2018077706

PATIENT

DRUGS (1)
  1. ENBREL [Suspect]
     Active Substance: ETANERCEPT
     Indication: COLLAGEN DISORDER
     Dosage: UNK UNK, 2 TIMES/WK
     Route: 065

REACTIONS (3)
  - Blood lactate dehydrogenase increased [Unknown]
  - Gamma-glutamyltransferase increased [Unknown]
  - Lactic acidosis [Unknown]
